FAERS Safety Report 4814055-3 (Version None)
Quarter: 2005Q4

REPORT INFORMATION
  Report Type: 
  Country: None (occurrence: None)
  Receive Date: 20051028
  Receipt Date: 20050720
  Transmission Date: 20060501
  Serious: No
  Sender: FDA-Public Use
  Company Number: S2005US10724

PATIENT
  Sex: Female

DRUGS (2)
  1. SEREVENT [Suspect]
     Route: 055
  2. FORADIL [Concomitant]
     Route: 065

REACTIONS (2)
  - DYSPHONIA [None]
  - HEART RATE INCREASED [None]
